FAERS Safety Report 7121528-X (Version None)
Quarter: 2010Q4

REPORT INFORMATION
  Report Type: 
  Country: None (occurrence: None)
  Receive Date: 20101124
  Receipt Date: 20101114
  Transmission Date: 20110411
  Serious: Yes (Other)
  Sender: FDA-Public Use
  Company Number: PT-GENZYME-THYM-1002088

PATIENT

DRUGS (1)
  1. TIMOGLOBULINA [Suspect]
     Indication: APLASTIC ANAEMIA
     Dosage: UNK
     Route: 042
     Dates: start: 20090101, end: 20090101

REACTIONS (1)
  - OSTEONECROSIS [None]
